FAERS Safety Report 9805258 (Version 1)
Quarter: 2014Q1

REPORT INFORMATION
  Report Type: Spontaneous
  Country: GB (occurrence: None)
  Receive Date: 20140106
  Receipt Date: 20140106
  Transmission Date: 20141002
  Serious: Yes (Hospitalization)
  Sender: FDA-Public Use
  Company Number: 2012922

PATIENT
  Age: 85 Year
  Sex: 0

DRUGS (12)
  1. GENTAMICIN SULFATE [Suspect]
     Indication: PRODUCT USED FOR UNKNOWN INDICATION
     Route: 042
     Dates: start: 20111128, end: 20111128
  2. AMOXICILLIN [Suspect]
     Indication: PRODUCT USED FOR UNKNOWN INDICATION
     Dosage: STAT DOSE
     Dates: start: 20111128, end: 20111128
  3. CLARITHROMYCIN [Suspect]
     Indication: PRODUCT USED FOR UNKNOWN INDICATION
     Dosage: STAT DOSE
     Dates: start: 20111128, end: 20111128
  4. CEFALEXIN [Suspect]
     Indication: PRODUCT USED FOR UNKNOWN INDICATION
     Dosage: 4 DAY
     Route: 048
     Dates: start: 20110622
  5. NITROFURANTOIN [Suspect]
     Indication: PRODUCT USED FOR UNKNOWN INDICATION
     Dosage: 2 DAY
     Route: 048
     Dates: start: 20110929, end: 20111006
  6. CIPROFLOXACIN [Suspect]
     Indication: PRODUCT USED FOR UNKNOWN INDICATION
     Dosage: 2 DAY
     Route: 048
     Dates: start: 20110630, end: 20110707
  7. FLUCLOXACILLIN [Concomitant]
  8. NITROFURANTOIN [Concomitant]
  9. ERTAPENEM [Concomitant]
  10. TRIMETHOPRIM [Concomitant]
  11. GENTAMICIN [Concomitant]
  12. CEFALEXIN [Concomitant]

REACTIONS (1)
  - Clostridium difficile infection [None]
